FAERS Safety Report 9174033 (Version 1)
Quarter: 2013Q1

REPORT INFORMATION
  Report Type: Spontaneous
  Country: US (occurrence: US)
  Receive Date: 20130320
  Receipt Date: 20130320
  Transmission Date: 20140127
  Serious: No
  Sender: FDA-Public Use
  Company Number: US-PFIZER INC-2013086514

PATIENT
  Age: 30 Year
  Sex: 0

DRUGS (5)
  1. SUMATRIPTAN SUCCINATE [Suspect]
     Dosage: UNK
  2. TRAMADOL HCL [Suspect]
     Dosage: UNK
  3. BUPRENORPHINE [Suspect]
     Dosage: UNK
  4. SUMATRIPTAN [Suspect]
     Dosage: UNK
  5. TAPENTADOL [Suspect]
     Dosage: UNK

REACTIONS (1)
  - Drug hypersensitivity [Unknown]
